FAERS Safety Report 4908288-5 (Version None)
Quarter: 2006Q1

REPORT INFORMATION
  Report Type: 
  Country: None (occurrence: None)
  Receive Date: 20060210
  Receipt Date: 20051227
  Transmission Date: 20060701
  Serious: Yes (Death)
  Sender: FDA-Public Use
  Company Number: US-BRISTOL-MYERS SQUIBB COMPANY-13230024

PATIENT
  Age: 71 Year
  Sex: Male

DRUGS (3)
  1. MEGACE [Suspect]
     Indication: DECREASED APPETITE
     Route: 048
     Dates: start: 20040909, end: 20051201
  2. CISPLATIN [Concomitant]
     Dates: start: 20050601, end: 20051101
  3. CAMPTOSAR [Concomitant]
     Dates: start: 20050601, end: 20051101

REACTIONS (2)
  - MALIGNANT NEOPLASM PROGRESSION [None]
  - SMALL CELL LUNG CANCER STAGE UNSPECIFIED [None]
